FAERS Safety Report 11517710 (Version 1)
Quarter: 2015Q3

REPORT INFORMATION
  Report Type: Spontaneous
  Country: US (occurrence: None)
  Receive Date: 20150916
  Receipt Date: 20150916
  Transmission Date: 20151125
  Serious: Yes (Disabling)
  Sender: FDA-Public Use
  Company Number: None

PATIENT
  Age: 30 Year
  Sex: Female
  Weight: 58.97 kg

DRUGS (5)
  1. PREDNISONE. [Concomitant]
     Active Substance: PREDNISONE
  2. LIALDA [Concomitant]
     Active Substance: MESALAMINE
  3. REMICADE [Suspect]
     Active Substance: INFLIXIMAB
     Indication: COLITIS ULCERATIVE
     Dosage: 100 MG INJECTION EVERY 8-6 WEEKS
     Dates: start: 20140616, end: 20150615
  4. BROMOCRIPTINE [Concomitant]
     Active Substance: BROMOCRIPTINE
  5. AVIANE [Concomitant]
     Active Substance: ETHINYL ESTRADIOL\LEVONORGESTREL

REACTIONS (3)
  - Movement disorder [None]
  - Myositis [None]
  - Arthritis [None]

NARRATIVE: CASE EVENT DATE: 201503
